FAERS Safety Report 4614039-4 (Version None)
Quarter: 2005Q1

REPORT INFORMATION
  Report Type: 
  Country: None (occurrence: None)
  Receive Date: 20050316
  Receipt Date: 20050225
  Transmission Date: 20050727
  Serious: Yes (Hospitalization)
  Sender: FDA-Public Use
  Company Number: FR_030602519

PATIENT
  Age: 28 Year
  Sex: Female

DRUGS (5)
  1. ZYPREXA [Suspect]
     Indication: PSYCHOTIC DISORDER
     Dosage: 10 MG/ DAY
     Dates: start: 20030601
  2. AUGMENTIN '125' [Concomitant]
  3. NICARDIPINE HCL [Concomitant]
  4. FERROSTRANE (SODIUM FEREDETATE) [Concomitant]
  5. MAG 2 (MAGNESIUM PIDOLATE) [Concomitant]

REACTIONS (7)
  - ASTHENIA [None]
  - CAESAREAN SECTION [None]
  - DELIRIUM [None]
  - DRUG EXPOSURE DURING PREGNANCY [None]
  - PRE-ECLAMPSIA [None]
  - PREMATURE LABOUR [None]
  - PYREXIA [None]
